FAERS Safety Report 18232791 (Version 1)
Quarter: 2020Q3

REPORT INFORMATION
  Report Type: Spontaneous
  Country: SE (occurrence: SE)
  Receive Date: 20200904
  Receipt Date: 20200904
  Transmission Date: 20201103
  Serious: Yes (Other)
  Sender: FDA-Public Use
  Company Number: SE-REGENERON PHARMACEUTICALS, INC.-2020-57079

PATIENT

DRUGS (1)
  1. EYLEA [Suspect]
     Active Substance: AFLIBERCEPT
     Indication: PRODUCT USED FOR UNKNOWN INDICATION
     Dosage: UNILATERAL INJECTIONS, SO ONLY 6 EYES HAVE BEEN AFFECTED

REACTIONS (4)
  - Visual impairment [Unknown]
  - Intraocular pressure increased [Unknown]
  - Device difficult to use [Unknown]
  - Device use error [Unknown]
